FAERS Safety Report 24225497 (Version 1)
Quarter: 2024Q3

REPORT INFORMATION
  Report Type: Spontaneous
  Country: PE (occurrence: PE)
  Receive Date: 20240820
  Receipt Date: 20240820
  Transmission Date: 20241017
  Serious: Yes (Other)
  Sender: ROCHE
  Company Number: PE-BoehringerIngelheim-2024-BI-045482

PATIENT
  Sex: Male

DRUGS (2)
  1. ALTEPLASE [Suspect]
     Active Substance: ALTEPLASE
     Indication: Cerebrovascular accident
     Dosage: 0.9
     Route: 042
     Dates: start: 2023, end: 2023
  2. ALTEPLASE [Suspect]
     Active Substance: ALTEPLASE
     Dosage: 0.9
     Route: 042
     Dates: start: 2023, end: 2023

REACTIONS (1)
  - Cerebrovascular accident [Recovered/Resolved with Sequelae]

NARRATIVE: CASE EVENT DATE: 20230101
